FAERS Safety Report 9803082 (Version 1)
Quarter: 2014Q1

REPORT INFORMATION
  Report Type: Spontaneous
  Country: US (occurrence: US)
  Receive Date: 20140108
  Receipt Date: 20140108
  Transmission Date: 20141002
  Serious: No
  Sender: FDA-Public Use
  Company Number: US-BAYER-2014-002747

PATIENT
  Age: 61 Year
  Sex: Female
  Weight: 95 kg

DRUGS (4)
  1. ALEVE CAPLET [Suspect]
     Indication: ARTHRALGIA
     Dosage: 2 DF, QD
     Route: 048
  2. PRINZIDE [Concomitant]
  3. SINEMET [Concomitant]
  4. MIRAPEX [Concomitant]

REACTIONS (1)
  - Incorrect drug administration duration [None]
